FAERS Safety Report 7512629-2 (Version None)
Quarter: 2011Q2

REPORT INFORMATION
  Report Type: 
  Country: None (occurrence: None)
  Receive Date: 20110531
  Receipt Date: 20110527
  Transmission Date: 20111010
  Serious: Yes (Other)
  Sender: FDA-Public Use
  Company Number: CN-ROCHE-779639

PATIENT
  Age: 38 Year
  Sex: Male

DRUGS (4)
  1. PEGASYS [Suspect]
     Indication: HEPATITIS C
     Route: 058
     Dates: start: 20110315, end: 20110322
  2. RIBAVARIN [Concomitant]
     Route: 048
     Dates: start: 20110329
  3. PEGASYS [Suspect]
     Route: 058
     Dates: start: 20110329
  4. RIBAVARIN [Concomitant]
     Indication: HEPATITIS C
     Route: 048
     Dates: start: 20110315, end: 20110322

REACTIONS (1)
  - GLUCOSE-6-PHOSPHATE DEHYDROGENASE DEFICIENCY [None]
